FAERS Safety Report 6115653-X (Version None)
Quarter: 2009Q1

REPORT INFORMATION
  Report Type: 
  Country: None (occurrence: None)
  Receive Date: 20090313
  Receipt Date: 20090310
  Transmission Date: 20090719
  Serious: Yes (Disabling, Other)
  Sender: FDA-Public Use
  Company Number: US-ASTRAZENECA-2005UW12709

PATIENT
  Age: 63 Year
  Sex: Male
  Weight: 113.4 kg

DRUGS (17)
  1. ENTOCORT EC [Suspect]
     Indication: CROHN'S DISEASE
     Route: 048
     Dates: start: 20031201, end: 20040101
  2. ENTOCORT EC [Suspect]
     Indication: COLITIS ULCERATIVE
     Route: 048
     Dates: start: 20031201, end: 20040101
  3. ENTOCORT EC [Suspect]
     Dosage: DAILY
     Route: 048
     Dates: start: 20040201, end: 20040301
  4. ENTOCORT EC [Suspect]
     Dosage: DAILY
     Route: 048
     Dates: start: 20040201, end: 20040301
  5. ENTOCORT EC [Suspect]
     Route: 048
     Dates: start: 20040301
  6. ENTOCORT EC [Suspect]
     Route: 048
     Dates: start: 20040301
  7. ENTOCORT EC [Suspect]
     Dosage: 2-3 DAYS IN A ROW PER MONTH
     Route: 048
     Dates: start: 20060201, end: 20060101
  8. ENTOCORT EC [Suspect]
     Dosage: 2-3 DAYS IN A ROW PER MONTH
     Route: 048
     Dates: start: 20060201, end: 20060101
  9. PENTASA [Concomitant]
     Route: 048
     Dates: start: 20040318, end: 20040506
  10. DIFLUCAN [Concomitant]
  11. ASACOL [Concomitant]
  12. DIAZIDE [Concomitant]
  13. ALLEGRA [Concomitant]
  14. LOMOTIL [Concomitant]
  15. PROTONIX [Concomitant]
     Route: 048
     Dates: start: 20040223
  16. ASPIRIN [Concomitant]
  17. ACIPHEX [Concomitant]

REACTIONS (32)
  - ABDOMINAL PAIN UPPER [None]
  - ACNE [None]
  - BACK PAIN [None]
  - BALANCE DISORDER [None]
  - BLOOD CORTISOL DECREASED [None]
  - BODY HEIGHT DECREASED [None]
  - BONE PAIN [None]
  - CALCIUM METABOLISM DISORDER [None]
  - CATARACT [None]
  - CONTUSION [None]
  - DECREASED APPETITE [None]
  - DIZZINESS [None]
  - DYSPNOEA [None]
  - EJACULATION DISORDER [None]
  - ERYTHEMA [None]
  - FLUID RETENTION [None]
  - FUNGAL SKIN INFECTION [None]
  - HYPERADRENOCORTICISM [None]
  - HYPOACUSIS [None]
  - MUSCLE ATROPHY [None]
  - NAUSEA [None]
  - PAIN [None]
  - PHOTOPHOBIA [None]
  - RASH [None]
  - SALIVARY GLAND CANCER [None]
  - SKIN ATROPHY [None]
  - SLEEP DISORDER [None]
  - SPINAL FRACTURE [None]
  - VARICOSE VEIN [None]
  - VISION BLURRED [None]
  - VITAMIN D DECREASED [None]
  - WEIGHT DECREASED [None]
